FAERS Safety Report 18898057 (Version 2)
Quarter: 2021Q1

REPORT INFORMATION
  Report Type: Spontaneous
  Country: JP (occurrence: JP)
  Receive Date: 20210216
  Receipt Date: 20210308
  Transmission Date: 20210420
  Serious: Yes (Hospitalization)
  Sender: FDA-Public Use
  Company Number: NVSJ2021JP002339

PATIENT
  Age: 77 Year
  Sex: Female

DRUGS (2)
  1. EQUMET [Suspect]
     Active Substance: METFORMIN HYDROCHLORIDE\VILDAGLIPTIN
     Dosage: METFORMIN HYDROCHLORIDE UNK/ VILDAGLIPTIN 50MG
     Route: 048
  2. EQUMET [Suspect]
     Active Substance: METFORMIN HYDROCHLORIDE\VILDAGLIPTIN
     Indication: PRODUCT USED FOR UNKNOWN INDICATION
     Dosage: METFORMIN HYDROCHLORIDE UNK/ VILDAGLIPTIN 50MG
     Route: 048

REACTIONS (1)
  - Intestinal obstruction [Recovered/Resolved]
